FAERS Safety Report 26095312 (Version 1)
Quarter: 2025Q4

REPORT INFORMATION
  Report Type: Report from Study
  Country: EU (occurrence: EU)
  Receive Date: 20251127
  Receipt Date: 20251127
  Transmission Date: 20260117
  Serious: Yes (Hospitalization)
  Sender: ROCHE
  Company Number: EU-ML40914-1003003_869343_2

PATIENT
  Age: 61 Year
  Sex: Male
  Weight: 87 kg

DRUGS (11)
  1. EMICIZUMAB [Suspect]
     Active Substance: EMICIZUMAB
     Indication: Haemophilia A without inhibitors
     Route: 058
     Dates: start: 20210317, end: 20210407
  2. EMICIZUMAB [Suspect]
     Active Substance: EMICIZUMAB
     Route: 058
     Dates: start: 20210414
  3. ELOCTA [Concomitant]
     Active Substance: EFMOROCTOCOG ALFA
     Indication: Factor VIII deficiency
     Route: 042
     Dates: start: 202001, end: 202103
  4. ARCOXIA [Concomitant]
     Active Substance: ETORICOXIB
     Indication: Haemophilic arthropathy
     Route: 048
     Dates: start: 2018, end: 20240411
  5. ARCOXIA [Concomitant]
     Active Substance: ETORICOXIB
     Route: 048
     Dates: start: 20240412
  6. METAMIZOLE [Concomitant]
     Active Substance: METAMIZOLE
     Indication: Haemophilic arthropathy
     Route: 048
     Dates: start: 2020, end: 20240411
  7. METAMIZOLE [Concomitant]
     Active Substance: METAMIZOLE
     Route: 048
     Dates: start: 20240411, end: 20241017
  8. METAMIZOLE [Concomitant]
     Active Substance: METAMIZOLE
     Route: 048
     Dates: start: 20241017, end: 20241017
  9. DICLOFENAC [Concomitant]
     Active Substance: DICLOFENAC
     Indication: Headache
     Route: 048
     Dates: start: 20220914
  10. DICLOFENAC [Concomitant]
     Active Substance: DICLOFENAC
     Indication: Haemophilic arthropathy
     Route: 048
     Dates: start: 20240411, end: 20241017
  11. NITRENDIPINE [Concomitant]
     Active Substance: NITRENDIPINE
     Indication: Hypertension
     Route: 048
     Dates: start: 20250122

REACTIONS (1)
  - Renal infarct [Recovered/Resolved]

NARRATIVE: CASE EVENT DATE: 20250127
